FAERS Safety Report 10845817 (Version 1)
Quarter: 2015Q1

REPORT INFORMATION
  Report Type: Report from Study
  Country: PR (occurrence: PR)
  Receive Date: 20150220
  Receipt Date: 20150220
  Transmission Date: 20150721
  Serious: No
  Sender: FDA-Public Use
  Company Number: PR-ABBVIE-15K-131-1331351-00

PATIENT
  Age: 57 Year
  Sex: Female
  Weight: 51.76 kg

DRUGS (4)
  1. HUMIRA [Suspect]
     Active Substance: ADALIMUMAB
     Indication: RHEUMATOID ARTHRITIS
     Dosage: LOADING DOSE 80MG
     Route: 058
     Dates: start: 20140922, end: 20140922
  2. METHOTREXATE [Concomitant]
     Active Substance: METHOTREXATE
     Indication: PRODUCT USED FOR UNKNOWN INDICATION
  3. RELAFEN [Concomitant]
     Active Substance: NABUMETONE
     Indication: PAIN
     Dosage: WHEN NECESSARY
     Route: 048
  4. HUMIRA [Suspect]
     Active Substance: ADALIMUMAB
     Route: 058
     Dates: start: 2014, end: 20141009

REACTIONS (4)
  - Pain [Not Recovered/Not Resolved]
  - Arthritis [Recovering/Resolving]
  - Injection site erythema [Recovered/Resolved]
  - Injection site rash [Recovering/Resolving]

NARRATIVE: CASE EVENT DATE: 2014
